FAERS Safety Report 9084676 (Version 2)
Quarter: 2013Q2

REPORT INFORMATION
  Report Type: Spontaneous
  Country: US (occurrence: US)
  Receive Date: 20130131
  Receipt Date: 20130425
  Transmission Date: 20140414
  Serious: Yes (Hospitalization, Other)
  Sender: FDA-Public Use
  Company Number: US-PFIZER INC-2013037195

PATIENT
  Age: 56 Year
  Sex: Female
  Weight: 38.1 kg

DRUGS (10)
  1. NEURONTIN [Suspect]
     Indication: NEUROPATHY PERIPHERAL
     Dosage: 300 MG, 2X/DAY
     Route: 048
     Dates: start: 201207
  2. LYRICA [Suspect]
     Indication: FIBROMYALGIA
     Dosage: 75 MG, 2X/DAY
     Dates: start: 201210
  3. LYRICA [Suspect]
     Indication: NEUROPATHY PERIPHERAL
     Dosage: 75 MG, 3X/DAY
  4. CELEXA [Concomitant]
     Indication: DEPRESSION
     Dosage: 40 MG, DAILY
  5. VALIUM [Concomitant]
     Dosage: UNK, DAILY
  6. CYMBALTA [Concomitant]
     Dosage: UNK
  7. METOPROLOL [Concomitant]
     Indication: CARDIAC DISORDER
     Dosage: UNK
  8. MORPHINE [Concomitant]
     Dosage: UNK, 2X/DAY
  9. OMEPRAZOLE [Concomitant]
     Indication: GASTROOESOPHAGEAL REFLUX DISEASE
     Dosage: 40 MG, 2X/DAY
  10. PRILOSEC [Concomitant]
     Dosage: UNK

REACTIONS (19)
  - Drug ineffective [Unknown]
  - Convulsion [Unknown]
  - Cardiac disorder [Unknown]
  - Weight decreased [Unknown]
  - Burning sensation [Recovering/Resolving]
  - Vomiting [Unknown]
  - Therapeutic response unexpected [Unknown]
  - Nausea [Unknown]
  - Sleep terror [Unknown]
  - Pain [Unknown]
  - Feeling hot [Unknown]
  - Vitamin A decreased [Unknown]
  - Nervous system disorder [Unknown]
  - Sleep apnoea syndrome [Unknown]
  - Nerve injury [Unknown]
  - Erythema [Unknown]
  - Weight increased [Unknown]
  - Drug dose omission [Unknown]
  - Expired drug administered [Unknown]
